FAERS Safety Report 25865993 (Version 2)
Quarter: 2025Q4

REPORT INFORMATION
  Report Type: Spontaneous
  Country: US (occurrence: US)
  Receive Date: 20250930
  Receipt Date: 20251013
  Transmission Date: 20260117
  Serious: Yes (Hospitalization, Other)
  Sender: DR REDDYS
  Company Number: US-DRL-USA-USA/2025/09/014888

PATIENT
  Age: 15 Year
  Sex: Female

DRUGS (2)
  1. ACCUTANE [Suspect]
     Active Substance: ISOTRETINOIN
     Indication: Acne
     Dosage: WITH FOOD
     Route: 048
     Dates: start: 20250804
  2. ACCUTANE [Suspect]
     Active Substance: ISOTRETINOIN
     Dosage: WITH FOOD
     Route: 048
     Dates: start: 20250827

REACTIONS (2)
  - Depression [Unknown]
  - Suicidal ideation [Unknown]
